FAERS Safety Report 6321571-4 (Version None)
Quarter: 2009Q3

REPORT INFORMATION
  Report Type: 
  Country: None (occurrence: None)
  Receive Date: 20090820
  Receipt Date: 20090820
  Transmission Date: 20100115
  Serious: No
  Sender: FDA-Public Use
  Company Number: None

PATIENT
  Age: 44 Year
  Sex: Male
  Weight: 136.0791 kg

DRUGS (1)
  1. ZYRTEC [Suspect]
     Indication: HYPERSENSITIVITY
     Dosage: 10 MG ONCE DAILY PO
     Route: 048
     Dates: start: 20090816, end: 20090818

REACTIONS (4)
  - ANXIETY [None]
  - DEPRESSION [None]
  - DIZZINESS [None]
  - PRODUCT QUALITY ISSUE [None]
